FAERS Safety Report 23907280 (Version 1)
Quarter: 2024Q2

REPORT INFORMATION
  Report Type: Report from Study
  Country: US (occurrence: US)
  Receive Date: 20240528
  Receipt Date: 20240528
  Transmission Date: 20240716
  Serious: Yes (Hospitalization, Other)
  Sender: FDA-Public Use
  Company Number: US-GILEAD-2024-0674102

PATIENT
  Sex: Female

DRUGS (2)
  1. AZTREONAM LYSINE [Suspect]
     Active Substance: AZTREONAM LYSINE
     Indication: Cystic fibrosis
     Dosage: 75 MG, TID VIA ALTERA NEBULIZER FOR 28 DAYS ON, 28 DAYS OFF (OPPOSITE MONTH OF TOBI)
     Route: 055
  2. TOBI [Concomitant]
     Active Substance: TOBRAMYCIN

REACTIONS (3)
  - Cystic fibrosis [Unknown]
  - Pneumonia [Unknown]
  - Central venous catheterisation [Unknown]
